FAERS Safety Report 9306975 (Version 3)
Quarter: 2013Q2

REPORT INFORMATION
  Report Type: Spontaneous
  Country: JP (occurrence: JP)
  Receive Date: 20130523
  Receipt Date: 20130610
  Transmission Date: 20140414
  Serious: Yes (Other)
  Sender: FDA-Public Use
  Company Number: JP-OTSUKA-JP-2013-11554

PATIENT
  Age: 90 Year
  Sex: Male
  Weight: 54 kg

DRUGS (15)
  1. SAMSCA [Suspect]
     Indication: CARDIAC FAILURE CHRONIC
     Dosage: 15 MG MILLIGRAM(S), QD
     Route: 048
     Dates: start: 20130501, end: 20130509
  2. SAMSCA [Suspect]
     Indication: RENAL FAILURE CHRONIC
  3. SAMSCA [Suspect]
     Indication: GENERALISED OEDEMA
  4. HANP [Suspect]
     Indication: CARDIAC FAILURE CHRONIC
     Dosage: 8000 MCG, QD
     Route: 042
     Dates: start: 20130426, end: 20130428
  5. HANP [Suspect]
     Indication: RENAL FAILURE CHRONIC
     Dosage: 12000 MCG, QD
     Route: 042
     Dates: start: 20130429, end: 20130430
  6. HANP [Suspect]
     Indication: GENERALISED OEDEMA
     Dosage: 8000 MCG, QD
     Route: 042
     Dates: start: 20130504, end: 20130508
  7. ALDACTONE A [Concomitant]
     Indication: POLYURIA
     Dosage: 50 MG MILLIGRAM(S), QD
     Route: 048
     Dates: end: 20130506
  8. ONEALFA [Concomitant]
     Indication: OSTEOPOROSIS
     Dosage: 1 MCG, QD
     Route: 048
  9. ONEALFA [Concomitant]
     Indication: BLOOD CALCIUM DECREASED
  10. FLIVAS [Concomitant]
     Indication: DYSURIA
     Dosage: 25 MG MILLIGRAM(S), QD
     Route: 048
  11. LASIX [Concomitant]
     Indication: POLYURIA
     Dosage: 40 MG MILLIGRAM(S), QD
     Route: 048
  12. BENECID [Concomitant]
     Indication: HYPERURICAEMIA
     Dosage: 250 MG MILLIGRAM(S), QD
     Route: 048
  13. NORVASC [Concomitant]
     Indication: HYPERTENSION
     Dosage: 5 MG MILLIGRAM(S), QD
     Route: 048
  14. MAGLAX [Concomitant]
     Indication: CONSTIPATION
     Dosage: 660 MG MILLIGRAM(S), TID
     Route: 048
  15. MYSLEE [Concomitant]
     Indication: INSOMNIA
     Dosage: 5 MG MILLIGRAM(S), QD
     Route: 048

REACTIONS (1)
  - Platelet count decreased [Recovering/Resolving]
